FAERS Safety Report 5850933-4 (Version None)
Quarter: 2008Q3

REPORT INFORMATION
  Report Type: 
  Country: None (occurrence: None)
  Receive Date: 20080820
  Receipt Date: 20080812
  Transmission Date: 20090109
  Serious: Yes (Hospitalization)
  Sender: FDA-Public Use
  Company Number: PHHY2008JP17747

PATIENT
  Age: 62 Year
  Sex: Female

DRUGS (3)
  1. NEORAL [Suspect]
     Indication: MUSCULOSKELETAL PAIN
     Dosage: UNK
     Route: 048
  2. RHEUMATREX [Concomitant]
     Route: 048
  3. REMICADE [Concomitant]

REACTIONS (5)
  - COUGH [None]
  - INTERSTITIAL LUNG DISEASE [None]
  - PYREXIA [None]
  - RENAL IMPAIRMENT [None]
  - STOMATITIS [None]
